FAERS Safety Report 6133879-6 (Version None)
Quarter: 2009Q1

REPORT INFORMATION
  Report Type: 
  Country: None (occurrence: None)
  Receive Date: 20090326
  Receipt Date: 20090320
  Transmission Date: 20090719
  Serious: Yes (Hospitalization)
  Sender: FDA-Public Use
  Company Number: PHHY2008CA29840

PATIENT
  Sex: Female

DRUGS (11)
  1. DIOVAN [Suspect]
     Indication: HYPERTENSION
     Dosage: UNK MG, UNK
     Dates: start: 20070905, end: 20071025
  2. DIOVAN HCT [Suspect]
     Dosage: 160/25 MG
     Route: 048
  3. DIOVAN HCT [Suspect]
     Dosage: 80/12.5 MG
     Dates: start: 20080801
  4. ASAPHEN [Concomitant]
  5. PERINDOPRIL ERBUMINE [Concomitant]
  6. NOVOLIN [Concomitant]
     Route: 058
  7. VAGIFEM [Concomitant]
  8. ACETAMINOPHEN [Concomitant]
  9. EZETROL [Concomitant]
  10. CALCITE [Concomitant]
  11. DIXARIT [Concomitant]

REACTIONS (5)
  - CHILLS [None]
  - DIARRHOEA [None]
  - NAUSEA [None]
  - TREMOR [None]
  - VOMITING [None]
